FAERS Safety Report 19300800 (Version 1)
Quarter: 2021Q2

REPORT INFORMATION
  Report Type: Spontaneous
  Country: DE (occurrence: DE)
  Receive Date: 20210524
  Receipt Date: 20210524
  Transmission Date: 20210717
  Serious: Yes (Life-Threatening, Hospitalization, Other)
  Sender: FDA-Public Use
  Company Number: DE-BAUSCH-BL-2021-017378

PATIENT
  Age: 64 Year
  Sex: Female

DRUGS (6)
  1. INSULIN LISPRO [Suspect]
     Active Substance: INSULIN LISPRO
     Indication: DIABETES MELLITUS
     Dosage: UNK, 3X/DAY:TID
     Route: 058
     Dates: start: 20151113
  2. HYDROCORTISONE COMPARATOR [Suspect]
     Active Substance: HYDROCORTISONE
     Indication: ADRENAL INSUFFICIENCY
     Dosage: 20 MG, 2X/DAY:BID
     Route: 048
     Dates: start: 20140301
  3. FLUDROCORTISON [Concomitant]
     Active Substance: FLUDROCORTISONE
     Indication: PRIMARY ADRENAL INSUFFICIENCY
     Dosage: 0.1 MG, 1X/DAY:QD
     Route: 048
     Dates: start: 1970
  4. INSULIN GLARGINE [Suspect]
     Active Substance: INSULIN GLARGINE
     Indication: DIABETES MELLITUS
     Dosage: 8 IU, 1X/DAY:QD
     Route: 058
     Dates: start: 20151113
  5. L THYROXIN [Concomitant]
     Active Substance: LEVOTHYROXINE SODIUM
     Indication: AUTOIMMUNE THYROIDITIS
     Dosage: 150 ?G, 1X/DAY:QD
     Route: 048
  6. BETAHISTIN [Concomitant]
     Active Substance: BETAHISTINE
     Indication: VESTIBULAR DISORDER
     Dosage: 16 MG, 1X/DAY:QD
     Route: 048
     Dates: start: 2005

REACTIONS (1)
  - Adrenocortical insufficiency acute [Recovered/Resolved]

NARRATIVE: CASE EVENT DATE: 20151129
